FAERS Safety Report 5530670-6 (Version None)
Quarter: 2007Q4

REPORT INFORMATION
  Report Type: 
  Country: None (occurrence: None)
  Receive Date: 20071130
  Receipt Date: 20071121
  Transmission Date: 20080405
  Serious: Yes (Hospitalization)
  Sender: FDA-Public Use
  Company Number: FR-ROCHE-533172

PATIENT
  Age: 51 Year
  Sex: Female

DRUGS (1)
  1. XELODA [Suspect]
     Indication: BREAST CANCER
     Dosage: DOSE: 30 DOSEFORM OF 500 MG AND 30 DOSEFORM OF 150 MG.
     Route: 048
     Dates: start: 20071121

REACTIONS (1)
  - SUICIDE ATTEMPT [None]
